FAERS Safety Report 5790145-6 (Version None)
Quarter: 2008Q2

REPORT INFORMATION
  Report Type: 
  Country: None (occurrence: None)
  Receive Date: 20080626
  Receipt Date: 20080502
  Transmission Date: 20081010
  Serious: No
  Sender: FDA-Public Use
  Company Number: A0694669A

PATIENT

DRUGS (2)
  1. ALLI [Suspect]
     Route: 048
     Dates: start: 20071117
  2. CENTRUM [Suspect]
     Route: 048

REACTIONS (23)
  - ABDOMINAL DISTENSION [None]
  - ANOREXIA [None]
  - DECREASED APPETITE [None]
  - DEPRESSION [None]
  - DRUG INEFFECTIVE [None]
  - EATING DISORDER [None]
  - FAECAL INCONTINENCE [None]
  - FATIGUE [None]
  - FEAR [None]
  - FEELING ABNORMAL [None]
  - FLATULENCE [None]
  - GASTROINTESTINAL DISORDER [None]
  - HEADACHE [None]
  - HYPERSOMNIA [None]
  - MALAISE [None]
  - NERVOUSNESS [None]
  - PAIN IN EXTREMITY [None]
  - PRODUCTIVE COUGH [None]
  - RECTAL DISCHARGE [None]
  - SKIN DISCOLOURATION [None]
  - SLUGGISHNESS [None]
  - STRESS [None]
  - THERMAL BURN [None]
